FAERS Safety Report 5047320-8 (Version None)
Quarter: 2006Q3

REPORT INFORMATION
  Report Type: 
  Country: None (occurrence: None)
  Receive Date: 20060703
  Receipt Date: 20060621
  Transmission Date: 20061208
  Serious: Yes (Hospitalization)
  Sender: FDA-Public Use
  Company Number: 226555

PATIENT
  Age: 68 Year
  Sex: Female
  Weight: 63.9 kg

DRUGS (16)
  1. AVASTIN [Suspect]
     Indication: NON-SMALL CELL LUNG CANCER
     Dosage: 1009 MG, Q3W, INTRAVENOUS
     Route: 042
     Dates: start: 20060601
  2. ELOXATIN [Suspect]
     Indication: NON-SMALL CELL LUNG CANCER
     Dosage: 197 MG, Q3W, INTRAVENOUS
     Route: 042
     Dates: start: 20060601
  3. ALIMTA [Suspect]
     Indication: NON-SMALL CELL LUNG CANCER
     Dosage: 820 MG, Q3W, INTRAVENOUS
     Route: 042
     Dates: start: 20060601
  4. AVAPRO [Concomitant]
  5. PROTONIX [Concomitant]
  6. PRAVACHOL [Concomitant]
  7. HYDROCHLOROTHIAZIDE [Concomitant]
  8. METOPROLOL TARTRATE [Concomitant]
  9. ASPIRIN [Concomitant]
  10. FOSAMAX [Concomitant]
  11. ALBUTEROL INHALER (ALBUTEROL/ALBUTEROL SULFATE) [Concomitant]
  12. NITROGLYCERIN [Concomitant]
  13. XALATAN [Concomitant]
  14. SONATA [Concomitant]
  15. CYANOCOBALAMIN [Concomitant]
  16. FOLIC ACID [Concomitant]

REACTIONS (12)
  - ATELECTASIS [None]
  - BLOOD BILIRUBIN INCREASED [None]
  - BLOOD CALCIUM DECREASED [None]
  - BLOOD CREATINE INCREASED [None]
  - BLOOD SODIUM DECREASED [None]
  - BRONCHIAL OBSTRUCTION [None]
  - HAEMOGLOBIN DECREASED [None]
  - HAEMOPTYSIS [None]
  - HYPOXIA [None]
  - MEDIASTINAL MASS [None]
  - NEOPLASM PROGRESSION [None]
  - WHITE BLOOD CELL COUNT INCREASED [None]
